FAERS Safety Report 24022494 (Version 1)
Quarter: 2024Q2

REPORT INFORMATION
  Report Type: Spontaneous
  Country: JP (occurrence: JP)
  Receive Date: 20240627
  Receipt Date: 20240627
  Transmission Date: 20240715
  Serious: No
  Sender: FDA-Public Use
  Company Number: JP-CHUGAI-2024011844

PATIENT
  Age: 19 Year
  Sex: Female

DRUGS (1)
  1. ROZLYTREK [Suspect]
     Active Substance: ENTRECTINIB
     Indication: Nephroblastoma
     Route: 065
     Dates: start: 20240315

REACTIONS (2)
  - Blood creatinine increased [Recovered/Resolved]
  - Hyperuricaemia [Recovered/Resolved]
